FAERS Safety Report 7717680-5 (Version None)
Quarter: 2011Q3

REPORT INFORMATION
  Report Type: 
  Country: None (occurrence: None)
  Receive Date: 20110830
  Receipt Date: 20110830
  Transmission Date: 20111222
  Serious: Yes (Other)
  Sender: FDA-Public Use
  Company Number: None

PATIENT
  Age: 73 Year
  Sex: Male
  Weight: 99.79 kg

DRUGS (1)
  1. COLCRYS [Suspect]

REACTIONS (2)
  - PRODUCT SUBSTITUTION ISSUE [None]
  - ECONOMIC PROBLEM [None]
